FAERS Safety Report 4933214-2 (Version None)
Quarter: 2006Q1

REPORT INFORMATION
  Report Type: 
  Country: None (occurrence: None)
  Receive Date: 20060306
  Receipt Date: 20051019
  Transmission Date: 20060701
  Serious: Yes (Disabling, Other)
  Sender: FDA-Public Use
  Company Number: PR-MERCK-0510USA08208

PATIENT
  Age: 52 Year
  Sex: Female
  Weight: 82 kg

DRUGS (8)
  1. VIOXX [Suspect]
     Indication: OSTEOARTHRITIS
     Route: 048
     Dates: start: 19990101, end: 20030101
  2. VIOXX [Suspect]
     Route: 048
     Dates: start: 19990101, end: 20030101
  3. VIOXX [Suspect]
     Indication: OSTEOPOROSIS
     Route: 048
     Dates: start: 19990101, end: 20030101
  4. VIOXX [Suspect]
     Route: 048
     Dates: start: 19990101, end: 20030101
  5. CELEBREX [Concomitant]
     Route: 065
  6. VASOTEC RPD [Concomitant]
     Route: 065
  7. GLYNASE [Concomitant]
     Route: 065
  8. GLUCOPHAGE [Concomitant]
     Route: 065

REACTIONS (17)
  - ANGINA PECTORIS [None]
  - BLOOD CHOLESTEROL INCREASED [None]
  - BLOOD TRIGLYCERIDES INCREASED [None]
  - BRONCHITIS [None]
  - CEREBROVASCULAR ACCIDENT [None]
  - DYSPEPSIA [None]
  - GASTRITIS [None]
  - GASTROOESOPHAGEAL REFLUX DISEASE [None]
  - HYPERTENSION [None]
  - INFECTION [None]
  - LACUNAR INFARCTION [None]
  - MYOCARDIAL INFARCTION [None]
  - OVERDOSE [None]
  - PANCREATITIS [None]
  - THYROID DISORDER [None]
  - ULCER [None]
  - URINARY TRACT INFECTION [None]
